FAERS Safety Report 7641443-2 (Version None)
Quarter: 2011Q3

REPORT INFORMATION
  Report Type: 
  Country: None (occurrence: None)
  Receive Date: 20110727
  Receipt Date: 20110727
  Transmission Date: 20111222
  Serious: No
  Sender: FDA-Public Use
  Company Number: None

PATIENT
  Sex: Female

DRUGS (1)
  1. COPAXONE [Suspect]
     Indication: MULTIPLE SCLEROSIS
     Dosage: 20MG DAILY SUBCUTANEOUSLY
     Dates: start: 20110525

REACTIONS (3)
  - SWOLLEN TONGUE [None]
  - GLOSSODYNIA [None]
  - DYSPNOEA [None]
